FAERS Safety Report 9565672 (Version 1)
Quarter: 2013Q3

REPORT INFORMATION
  Report Type: Spontaneous
  Country: US (occurrence: US)
  Receive Date: 20130930
  Receipt Date: 20130930
  Transmission Date: 20140515
  Serious: Yes (Death)
  Sender: FDA-Public Use
  Company Number: US-COVIDIEN/TYCO HEALTHCARE/MALLINCKRODT-T201301149

PATIENT
  Age: 62 Year
  Sex: Female

DRUGS (2)
  1. KIT FOR THE PREPARATION OF TECHNETIUM (TC-99M) SESTAMIBI INJECTION [Suspect]
     Indication: CARDIAC STRESS TEST
     Dosage: UNK
     Dates: start: 20130301, end: 20130301
  2. ULTRA-TECHNEKOW DTE GENERATOR [Concomitant]
     Indication: CARDIAC STRESS TEST
     Dosage: 12 MCI, UNK
     Dates: start: 20130301, end: 20130301

REACTIONS (1)
  - Drug ineffective [Unknown]
